FAERS Safety Report 5797306-0 (Version None)
Quarter: 2008Q3

REPORT INFORMATION
  Report Type: 
  Country: None (occurrence: None)
  Receive Date: 20080701
  Receipt Date: 20080619
  Transmission Date: 20090109
  Serious: Yes (Other)
  Sender: FDA-Public Use
  Company Number: US-PFIZER INC-2008052416

PATIENT
  Sex: Female
  Weight: 72.6 kg

DRUGS (31)
  1. CHANTIX [Suspect]
     Indication: SMOKING CESSATION THERAPY
  2. LYRICA [Concomitant]
  3. LYRICA [Concomitant]
  4. VITAMIN TAB [Concomitant]
  5. VITAMIN TAB [Concomitant]
  6. ASCORBIC ACID [Concomitant]
  7. ASCORBIC ACID [Concomitant]
  8. VITAMIN D [Concomitant]
  9. VITAMIN D [Concomitant]
  10. FENTANYL [Concomitant]
  11. FENTANYL [Concomitant]
  12. ACETAMINOPHEN AND OXYCODONE HCL [Concomitant]
  13. ACETAMINOPHEN AND OXYCODONE HCL [Concomitant]
  14. POTASSIUM CHLORIDE [Concomitant]
  15. POTASSIUM CHLORIDE [Concomitant]
  16. XYZAL [Concomitant]
  17. XYZAL [Concomitant]
  18. FLEXERIL [Concomitant]
  19. FLEXERIL [Concomitant]
  20. XANAX [Concomitant]
  21. XANAX [Concomitant]
  22. VITAMIN B [Concomitant]
  23. VITAMIN B [Concomitant]
  24. PREVACID [Concomitant]
  25. PREVACID [Concomitant]
  26. PROMETHAZINE [Concomitant]
  27. PROMETHAZINE [Concomitant]
  28. LOPERAMIDE HCL [Concomitant]
  29. LOPERAMIDE HCL [Concomitant]
  30. CITRACAL + D [Concomitant]
  31. CITRACAL + D [Concomitant]

REACTIONS (2)
  - MIGRAINE WITH AURA [None]
  - VISION BLURRED [None]
